FAERS Safety Report 10628399 (Version 1)
Quarter: 2014Q4

REPORT INFORMATION
  Report Type: Spontaneous
  Country: US (occurrence: US)
  Receive Date: 20141205
  Receipt Date: 20141205
  Transmission Date: 20150529
  Serious: No
  Sender: FDA-Public Use
  Company Number: US-BRISTOL-MYERS SQUIBB COMPANY-21434493

PATIENT
  Age: 22 Year
  Sex: Male

DRUGS (3)
  1. ABILIFY [Suspect]
     Active Substance: ARIPIPRAZOLE
     Indication: AFFECTIVE DISORDER
     Route: 048
  2. PROPRANOLOL [Concomitant]
     Active Substance: PROPRANOLOL\PROPRANOLOL HYDROCHLORIDE
  3. VIIBRYD [Concomitant]
     Active Substance: VILAZODONE HYDROCHLORIDE

REACTIONS (1)
  - Feeling jittery [Unknown]

NARRATIVE: CASE EVENT DATE: 201409
